FAERS Safety Report 23336655 (Version 1)
Quarter: 2023Q4

REPORT INFORMATION
  Report Type: Spontaneous
  Country: CA (occurrence: CA)
  Receive Date: 20231226
  Receipt Date: 20231226
  Transmission Date: 20240109
  Serious: Yes (Hospitalization, Other)
  Sender: FDA-Public Use
  Company Number: CA-SPC-000349

PATIENT
  Age: 67 Year
  Sex: Male

DRUGS (7)
  1. METRONIDAZOLE [Suspect]
     Active Substance: METRONIDAZOLE
     Indication: Clostridium difficile infection
     Route: 042
     Dates: start: 20211022, end: 20211103
  2. PIPERACILLIN AND TAZOBACTAM [Concomitant]
     Active Substance: PIPERACILLIN SODIUM\TAZOBACTAM SODIUM
     Indication: Clostridium difficile infection
     Route: 042
     Dates: start: 20211010, end: 20211025
  3. VANCOMYCIN [Concomitant]
     Active Substance: VANCOMYCIN
     Indication: Clostridium difficile infection
     Route: 048
     Dates: start: 20211011, end: 20211025
  4. MEROPENEM [Concomitant]
     Active Substance: MEROPENEM
     Indication: Clostridium difficile infection
     Route: 042
     Dates: start: 20211025, end: 20211102
  5. MEROPENEM [Concomitant]
     Active Substance: MEROPENEM
     Indication: Abdominal pain
     Route: 042
     Dates: start: 20211025, end: 20211102
  6. VANCOMYCIN [Concomitant]
     Active Substance: VANCOMYCIN
     Indication: Clostridium difficile infection
     Route: 048
     Dates: start: 20211025, end: 20211031
  7. VANCOMYCIN [Concomitant]
     Active Substance: VANCOMYCIN
     Indication: Clostridium difficile infection
     Route: 048
     Dates: start: 20211018, end: 20211022

REACTIONS (4)
  - Product use in unapproved indication [Unknown]
  - Infection [Recovered/Resolved]
  - Abdominal pain [Recovered/Resolved]
  - Hyperleukocytosis [Recovered/Resolved]
